FAERS Safety Report 8734697 (Version 2)
Quarter: 2012Q4

REPORT INFORMATION
  Report Type: 
  Country: US (occurrence: US)
  Receive Date: 20120821
  Receipt Date: 20121017
  Transmission Date: 20130627
  Serious: Yes (Hospitalization, Other)
  Sender: FDA-Public Use
  Company Number: PHEH2012US016222

PATIENT
  Age: 61 Year
  Sex: Female

DRUGS (1)
  1. CLOZARIL [Suspect]

REACTIONS (3)
  - Lung neoplasm malignant [Unknown]
  - White blood cell count increased [Unknown]
  - Neutrophil count increased [Unknown]
